FAERS Safety Report 9204818 (Version 1)
Quarter: 2013Q2

REPORT INFORMATION
  Report Type: Spontaneous
  Country: JP (occurrence: JP)
  Receive Date: 20130402
  Receipt Date: 20130402
  Transmission Date: 20140414
  Serious: Yes (Other)
  Sender: FDA-Public Use
  Company Number: JP-BRISTOL-MYERS SQUIBB COMPANY-18709857

PATIENT
  Sex: Male

DRUGS (2)
  1. VEPESID [Suspect]
  2. PARAPLATIN [Suspect]

REACTIONS (1)
  - Phlebitis [Unknown]
